FAERS Safety Report 23815484 (Version 1)
Quarter: 2024Q2

REPORT INFORMATION
  Report Type: Spontaneous
  Country: US (occurrence: None)
  Receive Date: 20240502
  Receipt Date: 20240502
  Transmission Date: 20240716
  Serious: Yes (Life-Threatening, Hospitalization)
  Sender: FDA-Public Use
  Company Number: None

PATIENT
  Age: 61 Year
  Sex: Male
  Weight: 133.8 kg

DRUGS (2)
  1. EMPAGLIFLOZIN [Suspect]
     Active Substance: EMPAGLIFLOZIN
     Indication: Proteinuria
     Dosage: 25 MG DAILY ORAL?
     Route: 048
     Dates: start: 20231101, end: 20240425
  2. EMPAGLIFLOZIN [Suspect]
     Active Substance: EMPAGLIFLOZIN
     Indication: Chronic kidney disease

REACTIONS (4)
  - Necrotising soft tissue infection [None]
  - Bacterial test positive [None]
  - Antimicrobial susceptibility test resistant [None]
  - Staphylococcus test positive [None]

NARRATIVE: CASE EVENT DATE: 20231223
